FAERS Safety Report 17767026 (Version 3)
Quarter: 2020Q3

REPORT INFORMATION
  Report Type: Spontaneous
  Country: US (occurrence: US)
  Receive Date: 20200511
  Receipt Date: 20200701
  Transmission Date: 20201102
  Serious: No
  Sender: FDA-Public Use
  Company Number: US-ASTRAZENECA-2020SE58126

PATIENT
  Sex: Male
  Weight: 68 kg

DRUGS (8)
  1. LOSARTAN. [Concomitant]
     Active Substance: LOSARTAN
     Indication: CEREBROVASCULAR ACCIDENT
     Route: 048
  2. METFORMIN [Concomitant]
     Active Substance: METFORMIN HYDROCHLORIDE
     Indication: DIABETES MELLITUS
     Route: 048
  3. SYMBICORT [Suspect]
     Active Substance: BUDESONIDE\FORMOTEROL FUMARATE DIHYDRATE
     Indication: PNEUMONIA
     Dosage: 160/4.5UG. 2 PUFFS, TWO TIMES A DAY
     Route: 055
     Dates: start: 20191216
  4. GLIMEPIRIDE. [Concomitant]
     Active Substance: GLIMEPIRIDE
     Indication: DIABETES MELLITUS
     Route: 048
  5. XARELTO [Concomitant]
     Active Substance: RIVAROXABAN
     Indication: CEREBROVASCULAR ACCIDENT
     Route: 048
  6. TAMSULOSIN [Concomitant]
     Active Substance: TAMSULOSIN
     Indication: PROSTATIC DISORDER
     Route: 048
  7. ATORVASTATIN [Concomitant]
     Active Substance: ATORVASTATIN
     Route: 048
  8. FINASTERIDE. [Concomitant]
     Active Substance: FINASTERIDE
     Indication: PROSTATIC DISORDER
     Route: 048

REACTIONS (8)
  - Chest pain [Unknown]
  - Drug delivery system issue [Unknown]
  - Wrong technique in device usage process [Unknown]
  - Dyspnoea [Not Recovered/Not Resolved]
  - Product packaging quantity issue [Unknown]
  - Intentional product misuse [Unknown]
  - Product dose omission issue [Unknown]
  - Intentional device misuse [Unknown]
